FAERS Safety Report 12578016 (Version 1)
Quarter: 2016Q3

REPORT INFORMATION
  Report Type: Spontaneous
  Country: US (occurrence: US)
  Receive Date: 20160721
  Receipt Date: 20160721
  Transmission Date: 20161109
  Serious: No
  Sender: FDA-Public Use
  Company Number: US-BEH-2016071137

PATIENT
  Sex: Male
  Weight: 94.33 kg

DRUGS (41)
  1. ACETAMINOPHEN. [Concomitant]
     Active Substance: ACETAMINOPHEN
  2. TORSEMIDE. [Concomitant]
     Active Substance: TORSEMIDE
  3. RANITIDINE. [Concomitant]
     Active Substance: RANITIDINE
  4. THEOPHYLLINE [Concomitant]
     Active Substance: THEOPHYLLINE ANHYDROUS
  5. HIZENTRA [Suspect]
     Active Substance: HUMAN IMMUNOGLOBULIN G
     Indication: IMMUNODEFICIENCY COMMON VARIABLE
     Dosage: 12 G, QW
     Route: 058
     Dates: start: 20110324
  6. PREDNISONE. [Concomitant]
     Active Substance: PREDNISONE
  7. ATORVASTATIN [Concomitant]
     Active Substance: ATORVASTATIN
  8. FLUTICASONE [Concomitant]
     Active Substance: FLUTICASONE\FLUTICASONE PROPIONATE
  9. LEVOTHYROXINE. [Concomitant]
     Active Substance: LEVOTHYROXINE
  10. MAGNESIUM OXIDE. [Concomitant]
     Active Substance: MAGNESIUM OXIDE
  11. DUONEB [Concomitant]
     Active Substance: ALBUTEROL SULFATE\IPRATROPIUM BROMIDE
  12. NITROGLYCERIN. [Concomitant]
     Active Substance: NITROGLYCERIN
  13. GABAPENTIN. [Concomitant]
     Active Substance: GABAPENTIN
  14. LISINOPRIL. [Concomitant]
     Active Substance: LISINOPRIL
  15. MULTIVITAMIN                       /00097801/ [Concomitant]
     Active Substance: VITAMINS
  16. ASPIRIN ADULT [Concomitant]
  17. LIDOCAINE/PRILOCAINE [Concomitant]
     Active Substance: LIDOCAINE\PRILOCAINE
  18. CLONIDINE. [Concomitant]
     Active Substance: CLONIDINE
  19. DIGOXIN. [Concomitant]
     Active Substance: DIGOXIN
  20. SAW PALMETTO                       /00833501/ [Concomitant]
     Active Substance: SAW PALMETTO
  21. CIPRODEX [Concomitant]
     Active Substance: CIPROFLOXACIN HYDROCHLORIDE\DEXAMETHASONE
  22. AZITHROMYCIN ANHYDROUS. [Concomitant]
     Active Substance: AZITHROMYCIN ANHYDROUS
  23. TRADJENTA [Concomitant]
     Active Substance: LINAGLIPTIN
  24. GLIPIZIDE. [Concomitant]
     Active Substance: GLIPIZIDE
  25. CLARITIN [Concomitant]
     Active Substance: LORATADINE
  26. OCUFLOX                            /00731801/ [Concomitant]
  27. VITAMIN C [Concomitant]
     Active Substance: ASCORBIC ACID
  28. ALLOPURINOL. [Concomitant]
     Active Substance: ALLOPURINOL
  29. TYLENOL EXTRA STRENGTH [Concomitant]
     Active Substance: ACETAMINOPHEN
  30. EPIPEN [Concomitant]
     Active Substance: EPINEPHRINE
  31. SYNTHROID [Concomitant]
     Active Substance: LEVOTHYROXINE SODIUM
  32. NAPROXEN. [Concomitant]
     Active Substance: NAPROXEN
  33. REQUIP [Concomitant]
     Active Substance: ROPINIROLE HYDROCHLORIDE
  34. ADVAIR HFA [Concomitant]
     Active Substance: FLUTICASONE PROPIONATE\SALMETEROL XINAFOATE
  35. CALCIUM [Concomitant]
     Active Substance: CALCIUM
  36. LIDOCAINE. [Concomitant]
     Active Substance: LIDOCAINE
  37. DIPHENHYDRAMINE. [Concomitant]
     Active Substance: DIPHENHYDRAMINE
  38. LANTUS [Concomitant]
     Active Substance: INSULIN GLARGINE
  39. OPTIVE [Concomitant]
     Active Substance: CARBOXYMETHYLCELLULOSE SODIUM\GLYCERIN
  40. NORVASC [Concomitant]
     Active Substance: AMLODIPINE BESYLATE
  41. MIRALAX [Concomitant]
     Active Substance: POLYETHYLENE GLYCOL 3350

REACTIONS (1)
  - Ear infection [Unknown]
